FAERS Safety Report 24980744 (Version 1)
Quarter: 2025Q1

REPORT INFORMATION
  Report Type: Report from Study
  Country: IN (occurrence: IN)
  Receive Date: 20250218
  Receipt Date: 20250218
  Transmission Date: 20250409
  Serious: Yes (Hospitalization, Other)
  Sender: NOVARTIS
  Company Number: IN-002147023-NVSC2024IN113935

PATIENT
  Sex: Female

DRUGS (9)
  1. RIBOCICLIB [Suspect]
     Active Substance: RIBOCICLIB
     Indication: Hormone receptor positive HER2 negative breast cancer
     Dosage: 200 MG, TID
     Route: 048
     Dates: start: 20220312
  2. RIBOCICLIB [Suspect]
     Active Substance: RIBOCICLIB
     Indication: Breast cancer metastatic
     Dosage: 600 MG, QD
     Route: 048
  3. TRAMADOL [Concomitant]
     Active Substance: TRAMADOL
     Indication: Product used for unknown indication
     Route: 065
  4. PANTOCID DSR [Concomitant]
     Indication: Product used for unknown indication
     Route: 065
  5. ACETAMINOPHEN [Concomitant]
     Active Substance: ACETAMINOPHEN
     Indication: Product used for unknown indication
     Route: 065
  6. GABAPENTIN [Concomitant]
     Active Substance: GABAPENTIN
     Indication: Product used for unknown indication
     Route: 065
  7. BUDETROL [Concomitant]
     Indication: Product used for unknown indication
     Route: 065
  8. D 360 [Concomitant]
     Indication: Product used for unknown indication
     Route: 065
  9. DENOSUMAB [Concomitant]
     Active Substance: DENOSUMAB
     Indication: Product used for unknown indication
     Route: 065

REACTIONS (11)
  - Nasopharyngitis [Unknown]
  - Abdominal pain [Unknown]
  - Arthralgia [Unknown]
  - Asthenia [Unknown]
  - White blood cell count decreased [Unknown]
  - Metastases to liver [Unknown]
  - Haemoglobin decreased [Unknown]
  - Hypophagia [Unknown]
  - Positron emission tomogram abnormal [Unknown]
  - Cough [Unknown]
  - Off label use [Unknown]

NARRATIVE: CASE EVENT DATE: 20241225
